FAERS Safety Report 17229734 (Version 4)
Quarter: 2020Q1

REPORT INFORMATION
  Report Type: Report from Study
  Country: IL (occurrence: IL)
  Receive Date: 20200103
  Receipt Date: 20200319
  Transmission Date: 20200409
  Serious: Yes (Other)
  Sender: FDA-Public Use
  Company Number: IL-TAKEDA-2019TUS074230

PATIENT
  Age: 81 Year
  Sex: Female

DRUGS (7)
  1. FUSID                              /00032601/ [Concomitant]
     Active Substance: FUROSEMIDE
  2. BISOPROLOL [Concomitant]
     Active Substance: BISOPROLOL
     Dosage: UNK
     Route: 065
  3. REVLIMID [Suspect]
     Active Substance: LENALIDOMIDE
     Indication: PRODUCT USED FOR UNKNOWN INDICATION
     Dosage: UNK
     Route: 065
     Dates: start: 20191107, end: 20191119
  4. DEXAMETHASONE. [Suspect]
     Active Substance: DEXAMETHASONE
     Indication: PLASMA CELL MYELOMA
     Dosage: 6 MILLIGRAM, 1/WEEK
     Route: 048
     Dates: start: 20191127
  5. IXAZOMIB [Suspect]
     Active Substance: IXAZOMIB
     Indication: PLASMA CELL MYELOMA
     Dosage: 3 MILLIGRAM
     Route: 048
     Dates: start: 20191127
  6. CANDESARTAN. [Concomitant]
     Active Substance: CANDESARTAN
     Dosage: UNK
     Route: 065
  7. LERCANIDIPINE HYDROCHLORIDE [Concomitant]
     Active Substance: LERCANIDIPINE HYDROCHLORIDE
     Dosage: UNK
     Route: 065

REACTIONS (10)
  - Amyloidosis [Recovering/Resolving]
  - Muscular weakness [Unknown]
  - Muscle spasms [Recovering/Resolving]
  - Asthenia [Recovered/Resolved]
  - Pain in extremity [Recovering/Resolving]
  - Rash macular [Recovered/Resolved]
  - Off label use [Unknown]
  - Neuropathy peripheral [Recovered/Resolved]
  - Haemorrhage [Not Recovered/Not Resolved]
  - Influenza [Recovered/Resolved]

NARRATIVE: CASE EVENT DATE: 2013
